FAERS Safety Report 8449136-9 (Version None)
Quarter: 2012Q2

REPORT INFORMATION
  Report Type: 
  Country: None (occurrence: None)
  Receive Date: 20120619
  Receipt Date: 20120613
  Transmission Date: 20120825
  Serious: Yes (Death, Hospitalization, Other)
  Sender: FDA-Public Use
  Company Number: US-AMGEN-USASP2011023101

PATIENT
  Age: 62 Year
  Sex: Female
  Weight: 81 kg

DRUGS (13)
  1. VITAMIN D [Concomitant]
     Dosage: 2000 IU, QD
  2. COREG [Concomitant]
     Dosage: 12.5 MG, QD
  3. ACIPHEX [Concomitant]
     Dosage: UNK
  4. COLACE [Concomitant]
     Dosage: 100 MG, QD
  5. XANAX [Concomitant]
     Dosage: 0.5 MG, Q6H
     Route: 048
  6. PROZAC [Concomitant]
     Dosage: 10 MG, QD
  7. TYLENOL (CAPLET) [Concomitant]
     Dosage: UNK
  8. INSULIN [Concomitant]
     Dosage: 25 IU, UNK
     Route: 058
  9. CRESTOR [Concomitant]
     Dosage: 10 MG, QD
  10. RENVELA [Concomitant]
     Dosage: 800 MG, UNK
     Route: 048
  11. COUMADIN [Concomitant]
     Dosage: 5 MG, QD
     Route: 048
  12. SENSIPAR [Suspect]
     Indication: HYPERPARATHYROIDISM SECONDARY
     Dosage: 30 MG, QD
     Route: 048
     Dates: start: 20110411, end: 20110430
  13. RENVELA [Concomitant]
     Dosage: 1600 MG, UNK

REACTIONS (12)
  - CARDIOMEGALY [None]
  - MUSCLE TWITCHING [None]
  - TARDIVE DYSKINESIA [None]
  - VOMITING [None]
  - BLOOD CALCIUM DECREASED [None]
  - TREMOR [None]
  - CONFUSIONAL STATE [None]
  - LOGORRHOEA [None]
  - DELIRIUM [None]
  - DEATH [None]
  - MOOD ALTERED [None]
  - NAUSEA [None]
